FAERS Safety Report 4311462-2 (Version None)
Quarter: 2004Q1

REPORT INFORMATION
  Report Type: 
  Country: None (occurrence: None)
  Receive Date: 20040302
  Receipt Date: 20040119
  Transmission Date: 20041129
  Serious: No
  Sender: FDA-Public Use
  Company Number: 200327469BWH

PATIENT
  Age: 80 Year
  Sex: Male

DRUGS (9)
  1. LEVITRA [Suspect]
     Indication: ERECTILE DYSFUNCTION
     Dosage: 10 MG, TOTALY DAILY, ORAL
     Route: 048
  2. ZOCOR [Concomitant]
  3. ALTACE [Concomitant]
  4. TOPROL-XL [Concomitant]
  5. CALCIUM [Concomitant]
  6. VITAMIN E [Concomitant]
  7. ASPIRIN [Concomitant]
  8. TESTOSTERONE [Concomitant]
  9. VIAGRA [Concomitant]

REACTIONS (1)
  - ERECTILE DYSFUNCTION [None]
